FAERS Safety Report 18016039 (Version 1)
Quarter: 2020Q3

REPORT INFORMATION
  Report Type: Spontaneous
  Country: NL (occurrence: NL)
  Receive Date: 20200713
  Receipt Date: 20200713
  Transmission Date: 20201103
  Serious: Yes (Other)
  Sender: FDA-Public Use
  Company Number: NL-PERRIGO-20NL009424

PATIENT
  Age: 23 Year
  Sex: Female
  Weight: 51 kg

DRUGS (1)
  1. PREVALIN ALLERSTOP CETIRIZINE 10 MG, FILMOMHULDE TABLETTEN 10 MG [Suspect]
     Active Substance: CETIRIZINE HYDROCHLORIDE
     Indication: SEASONAL ALLERGY
     Dosage: 1 X PER DAG 1 TABLET
     Route: 065
     Dates: start: 202004, end: 20200621

REACTIONS (1)
  - Hallucination [Recovered/Resolved]

NARRATIVE: CASE EVENT DATE: 20200619
